FAERS Safety Report 6368949-0 (Version None)
Quarter: 2009Q3

REPORT INFORMATION
  Report Type: 
  Country: None (occurrence: None)
  Receive Date: 20090922
  Receipt Date: 20090827
  Transmission Date: 20100115
  Serious: Yes (Hospitalization, Other)
  Sender: FDA-Public Use
  Company Number: US-BAXTER-2008BH005206

PATIENT
  Age: 63 Year
  Sex: Male
  Weight: 79 kg

DRUGS (21)
  1. HEPARIN SODIUM INJECTION [Suspect]
     Indication: PROPHYLAXIS
     Dosage: DOSE UNIT:UNKNOWN
     Route: 033
     Dates: start: 20071201, end: 20080301
  2. HEPARIN SODIUM INJECTION [Suspect]
     Dosage: DOSE UNIT:UNKNOWN
     Route: 033
     Dates: start: 20071201, end: 20080301
  3. FUROSEMIDE [Concomitant]
     Indication: DRUG USE FOR UNKNOWN INDICATION
     Route: 065
  4. HYDRALAZINE HCL [Concomitant]
     Indication: DRUG USE FOR UNKNOWN INDICATION
     Route: 065
  5. COZAAR [Concomitant]
     Indication: DRUG USE FOR UNKNOWN INDICATION
     Route: 065
  6. DOXAZOSIN MESYLATE [Concomitant]
     Indication: DRUG USE FOR UNKNOWN INDICATION
     Route: 065
  7. ATENOLOL [Concomitant]
     Indication: DRUG USE FOR UNKNOWN INDICATION
     Route: 065
  8. ALLOPURINOL [Concomitant]
     Indication: DRUG USE FOR UNKNOWN INDICATION
     Route: 065
  9. SIMVASTATIN [Concomitant]
     Indication: DRUG USE FOR UNKNOWN INDICATION
     Route: 065
  10. GLIPIZIDE [Concomitant]
     Indication: DRUG USE FOR UNKNOWN INDICATION
     Route: 065
  11. PRAMIPEXOLE [Concomitant]
     Indication: DRUG USE FOR UNKNOWN INDICATION
     Route: 065
  12. EPOGIN [Concomitant]
     Indication: DRUG USE FOR UNKNOWN INDICATION
     Route: 065
  13. ASPIRIN [Concomitant]
     Indication: DRUG USE FOR UNKNOWN INDICATION
     Route: 065
  14. ZANTAC [Concomitant]
     Indication: DRUG USE FOR UNKNOWN INDICATION
     Route: 065
  15. RENAGEL [Concomitant]
     Indication: DRUG USE FOR UNKNOWN INDICATION
     Route: 065
  16. SENSIPAR [Concomitant]
     Indication: DRUG USE FOR UNKNOWN INDICATION
     Route: 065
  17. ANUSOL-HC                               /USA/ [Concomitant]
     Indication: DRUG USE FOR UNKNOWN INDICATION
     Route: 054
  18. GLIMEPIRIDE [Concomitant]
     Indication: DRUG USE FOR UNKNOWN INDICATION
     Route: 065
  19. IRON [Concomitant]
     Indication: DRUG USE FOR UNKNOWN INDICATION
     Route: 065
  20. ADVAIR HFA [Concomitant]
     Indication: DRUG USE FOR UNKNOWN INDICATION
     Route: 055
  21. IMODIUM A-D [Concomitant]
     Indication: DRUG USE FOR UNKNOWN INDICATION
     Route: 065

REACTIONS (35)
  - ADVERSE EVENT [None]
  - ANAEMIA [None]
  - ARRHYTHMIA [None]
  - ASTHENIA [None]
  - CARDIAC DISORDER [None]
  - CARDIOMYOPATHY [None]
  - CHEST PAIN [None]
  - CHRONIC OBSTRUCTIVE PULMONARY DISEASE [None]
  - DECREASED APPETITE [None]
  - DIARRHOEA [None]
  - DISTURBANCE IN ATTENTION [None]
  - DYSPNOEA [None]
  - GENERAL PHYSICAL HEALTH DETERIORATION [None]
  - HAEMATOCHEZIA [None]
  - HEART RATE INCREASED [None]
  - HYPERKALAEMIA [None]
  - HYPERPARATHYROIDISM [None]
  - HYPERPHOSPHATAEMIA [None]
  - HYPERSENSITIVITY [None]
  - HYPERTENSION [None]
  - HYPOGLYCAEMIA [None]
  - INCOHERENT [None]
  - INSOMNIA [None]
  - LUNG DISORDER [None]
  - MALAISE [None]
  - NAUSEA [None]
  - OEDEMA PERIPHERAL [None]
  - RECTAL HAEMORRHAGE [None]
  - RENAL FAILURE CHRONIC [None]
  - RENAL IMPAIRMENT [None]
  - THROMBOCYTOPENIA [None]
  - UNRESPONSIVE TO STIMULI [None]
  - URINARY RETENTION [None]
  - VOMITING [None]
  - WEIGHT DECREASED [None]
